FAERS Safety Report 5413307-6 (Version None)
Quarter: 2007Q3

REPORT INFORMATION
  Report Type: 
  Country: None (occurrence: None)
  Receive Date: 20070717
  Receipt Date: 20070403
  Transmission Date: 20080115
  Serious: Yes (Other)
  Sender: FDA-Public Use
  Company Number: 2007US000754

PATIENT
  Age: 50 Year
  Weight: 70 kg

DRUGS (1)
  1. ADENOSCAN [Suspect]
     Indication: SCAN MYOCARDIAL PERFUSION
     Dosage: 49 MG

REACTIONS (2)
  - CHEST DISCOMFORT [None]
  - DYSPNOEA [None]
